FAERS Safety Report 5307956-3 (Version None)
Quarter: 2007Q2

REPORT INFORMATION
  Report Type: 
  Country: None (occurrence: None)
  Receive Date: 20070426
  Receipt Date: 20070413
  Transmission Date: 20071010
  Serious: Yes (Other)
  Sender: FDA-Public Use
  Company Number: 2007GB00464

PATIENT
  Sex: Male
  Weight: 91 kg

DRUGS (10)
  1. OMEPRAZOLE [Suspect]
     Indication: HIATUS HERNIA
     Route: 048
     Dates: start: 20050324
  2. SLOZEM [Concomitant]
     Indication: ANGINA PECTORIS
     Route: 048
  3. IKOREL [Concomitant]
     Indication: ANGINA PECTORIS
     Dosage: HALF, BID
     Route: 048
  4. ASPIRIN [Concomitant]
     Indication: ANGINA PECTORIS
     Route: 048
  5. LIPITOR [Concomitant]
     Indication: BLOOD CHOLESTEROL INCREASED
     Route: 048
  6. TAMSULOSIN MR [Concomitant]
  7. CORO NITRO SPRAY [Concomitant]
  8. AMITRIPTYLINE HCL [Concomitant]
  9. STEROID [Concomitant]
     Indication: ASTHMA
  10. BETA-2 AGONIST INHALER [Concomitant]
     Indication: ASTHMA
     Route: 055

REACTIONS (4)
  - AXILLARY PAIN [None]
  - BREAST PAIN [None]
  - BREAST SWELLING [None]
  - PAIN [None]
